FAERS Safety Report 6945492-9 (Version None)
Quarter: 2010Q3

REPORT INFORMATION
  Report Type: 
  Country: None (occurrence: None)
  Receive Date: 20100827
  Receipt Date: 20100623
  Transmission Date: 20110219
  Serious: No
  Sender: FDA-Public Use
  Company Number: US-PFIZER INC-2010061116

PATIENT
  Sex: Female
  Weight: 49.887 kg

DRUGS (13)
  1. CHANTIX [Suspect]
     Indication: SMOKING CESSATION THERAPY
     Dosage: UNK
     Route: 048
     Dates: start: 20100502
  2. LIPITOR [Concomitant]
     Dosage: UNK
  3. ADVAIR DISKUS 100/50 [Concomitant]
     Dosage: UNK
  4. METOPROLOL [Concomitant]
     Dosage: 25 MG, 1X/DAY
  5. NICOTROL [Concomitant]
     Dosage: UNK
  6. CLOBETASOL PROPIONATE [Concomitant]
     Indication: ERYTHEMA
     Dosage: 0.05%,
  7. CLOBETASOL PROPIONATE [Concomitant]
     Indication: PRURITUS
  8. CORDRAN [Concomitant]
     Dosage: 0.05%,
  9. VITAMIN D [Concomitant]
     Dosage: 1000 IU, UNK
  10. TRIAMTERENE [Concomitant]
     Dosage: UNK
  11. ALLOPURINOL [Concomitant]
  12. CENTRUM SILVER [Concomitant]
     Dosage: UNK
  13. LOVAZA [Concomitant]
     Dosage: UNK

REACTIONS (6)
  - ABDOMINAL DISCOMFORT [None]
  - DIARRHOEA [None]
  - INAPPROPRIATE SCHEDULE OF DRUG ADMINISTRATION [None]
  - SNORING [None]
  - TOBACCO ABUSE [None]
  - VOMITING [None]
